FAERS Safety Report 19434704 (Version 1)
Quarter: 2021Q2

REPORT INFORMATION
  Report Type: Spontaneous
  Country: US (occurrence: US)
  Receive Date: 20210617
  Receipt Date: 20210617
  Transmission Date: 20210717
  Serious: No
  Sender: FDA-Public Use
  Company Number: US-ROCHE-2678265

PATIENT
  Sex: Female
  Weight: 51.7 kg

DRUGS (9)
  1. PEPCID [Concomitant]
     Active Substance: FAMOTIDINE
     Route: 048
  2. PREDNISONE. [Concomitant]
     Active Substance: PREDNISONE
     Route: 048
  3. ANAKINRA [Concomitant]
     Active Substance: ANAKINRA
     Route: 058
  4. NAPROXEN SODIUM. [Concomitant]
     Active Substance: NAPROXEN SODIUM
     Route: 048
  5. ACTEMRA [Suspect]
     Active Substance: TOCILIZUMAB
     Indication: JUVENILE IDIOPATHIC ARTHRITIS
     Route: 058
  6. ACTEMRA [Suspect]
     Active Substance: TOCILIZUMAB
  7. ACTEMRA [Suspect]
     Active Substance: TOCILIZUMAB
  8. PREDNISONE. [Concomitant]
     Active Substance: PREDNISONE
  9. CANAKINUMAB. [Concomitant]
     Active Substance: CANAKINUMAB
     Dosage: 150 MG/ML
     Route: 058

REACTIONS (2)
  - Drug ineffective [Unknown]
  - No adverse event [Unknown]
